FAERS Safety Report 8036138-X (Version None)
Quarter: 2012Q1

REPORT INFORMATION
  Report Type: 
  Country: None (occurrence: None)
  Receive Date: 20120111
  Receipt Date: 20120105
  Transmission Date: 20120608
  Serious: Yes (Other)
  Sender: FDA-Public Use
  Company Number: US-WATSON-2012-00348

PATIENT
  Age: 49 Year
  Sex: Male

DRUGS (5)
  1. TNF-ALPHA INHIBITOR [Suspect]
     Indication: PRODUCT USED FOR UNKNOWN INDICATION
  2. CHEWABLE ANTACID EXTRA STRENGTH ASSORTED BERRIES [Suspect]
     Indication: BONE DISORDER
  3. ALENDRONATE SODIUM [Suspect]
     Indication: BONE DISORDER
     Dosage: UNK
  4. ANDRODERM [Suspect]
     Indication: HYPOGONADISM
  5. AOV VITAMIN D3 [Suspect]
     Indication: BONE DISORDER

REACTIONS (1)
  - ANKLE FRACTURE [None]
